FAERS Safety Report 6049247-1 (Version None)
Quarter: 2009Q1

REPORT INFORMATION
  Report Type: 
  Country: None (occurrence: None)
  Receive Date: 20090123
  Receipt Date: 20090121
  Transmission Date: 20090719
  Serious: Yes (Other)
  Sender: FDA-Public Use
  Company Number: NL-GENENTECH-274853

PATIENT
  Age: 12 Year
  Sex: Male

DRUGS (10)
  1. MABTHERA [Suspect]
     Indication: NEPHROTIC SYNDROME
     Dosage: 1000 MG, Q2W
     Route: 042
  2. MYCOPHENOLATE MOFETIL [Suspect]
     Indication: NEPHROTIC SYNDROME
     Dosage: 360 MG, TID
  3. PREDNISONE [Suspect]
     Indication: NEPHROTIC SYNDROME
     Dosage: 10 MG, QD
  4. PREDNISONE [Suspect]
     Dosage: 60 MG, QD
  5. PREDNISONE [Suspect]
     Dosage: 25 MG, QD
  6. PREDNISONE [Suspect]
     Dosage: 10 MG, QD
  7. CYCLOSPORINE [Suspect]
     Indication: NEPHROTIC SYNDROME
  8. TACROLIMUS [Suspect]
     Indication: NEPHROTIC SYNDROME
  9. METHYLPREDNISOLONE [Suspect]
     Dosage: 3 G, UNK
     Route: 042
  10. MYCOPHENOLIC ACID [Suspect]
     Indication: NEPHROTIC SYNDROME
     Dosage: 360 MG, TID

REACTIONS (2)
  - BLOOD CREATININE INCREASED [None]
  - PROTEINURIA [None]
